FAERS Safety Report 8241833-3 (Version None)
Quarter: 2012Q1

REPORT INFORMATION
  Report Type: 
  Country: None (occurrence: None)
  Receive Date: 20120328
  Receipt Date: 20120320
  Transmission Date: 20120608
  Serious: Yes (Hospitalization, Other)
  Sender: FDA-Public Use
  Company Number: US-ASTRAZENECA-2012SE02934

PATIENT
  Age: 53 Year
  Sex: Female
  Weight: 83.9 kg

DRUGS (10)
  1. NEXIUM [Suspect]
     Indication: GASTRIC ULCER
     Route: 048
     Dates: start: 20040101
  2. KLONOPIN [Concomitant]
     Indication: MENTAL DISORDER
  3. NEXIUM [Suspect]
     Indication: HIATUS HERNIA
     Route: 048
     Dates: start: 20040101
  4. OMEPRAZOLE [Concomitant]
     Route: 048
  5. ZOLOFT [Concomitant]
     Indication: MENTAL DISORDER
  6. AMBIEN [Concomitant]
     Dosage: AT NIGHT
  7. VITAMIN TAB [Concomitant]
  8. DEXILANT [Concomitant]
  9. NEXIUM [Suspect]
     Indication: OESOPHAGITIS
     Route: 048
     Dates: start: 20040101
  10. LAMICTAL [Concomitant]
     Indication: MENTAL DISORDER

REACTIONS (16)
  - APHAGIA [None]
  - GASTROOESOPHAGEAL REFLUX DISEASE [None]
  - SUICIDAL IDEATION [None]
  - ABDOMINAL PAIN UPPER [None]
  - DYSPHAGIA [None]
  - DRUG DOSE OMISSION [None]
  - BEZOAR [None]
  - IMPAIRED GASTRIC EMPTYING [None]
  - INTENTIONAL DRUG MISUSE [None]
  - GASTRITIS [None]
  - HIATUS HERNIA [None]
  - NAUSEA [None]
  - OESOPHAGEAL ULCER [None]
  - DRUG PRESCRIBING ERROR [None]
  - EROSIVE OESOPHAGITIS [None]
  - HAEMATEMESIS [None]
